FAERS Safety Report 7729270-9 (Version None)
Quarter: 2011Q3

REPORT INFORMATION
  Report Type: 
  Country: None (occurrence: None)
  Receive Date: 20110906
  Receipt Date: 20110903
  Transmission Date: 20111222
  Serious: No
  Sender: FDA-Public Use
  Company Number: US-PFIZER INC-2011206132

PATIENT
  Sex: Male
  Weight: 101.13 kg

DRUGS (6)
  1. TIZANIDINE [Concomitant]
     Indication: MUSCLE DISORDER
     Dosage: 2 MG, 2X/DAY
     Route: 048
  2. PROTONIX [Concomitant]
     Indication: GASTRIC ULCER
     Dosage: 40 MG, DAILY
     Route: 048
  3. NABUMETONE [Concomitant]
     Indication: INFLAMMATION
     Dosage: 500 MG, 2X/DAY
     Route: 048
  4. CHANTIX [Suspect]
     Indication: SMOKING CESSATION THERAPY
     Dosage: 1 MG, 2X/DAY
     Route: 048
     Dates: start: 20110819
  5. AMLODIPINE [Concomitant]
     Indication: HYPERTENSION
     Dosage: UNK, DAILY
     Route: 048
  6. TRAMADOL [Concomitant]
     Indication: PAIN
     Dosage: 50 MG, 3X/DAY
     Route: 048

REACTIONS (3)
  - HYPERSENSITIVITY [None]
  - RASH MACULAR [None]
  - MACULE [None]
